FAERS Safety Report 4888274-4 (Version None)
Quarter: 2006Q1

REPORT INFORMATION
  Report Type: 
  Country: None (occurrence: None)
  Receive Date: 20060119
  Receipt Date: 20060119
  Transmission Date: 20060701
  Serious: Yes (Life-Threatening, Hospitalization)
  Sender: FDA-Public Use
  Company Number: None

PATIENT
  Age: 54 Year
  Sex: Female
  Weight: 59 kg

DRUGS (2)
  1. PREVACID [Suspect]
     Indication: ABDOMINAL PAIN
     Dosage: 30 MG DAILY PO
     Route: 048
     Dates: start: 20051125
  2. PREVACID [Suspect]
     Indication: GASTROOESOPHAGEAL REFLUX DISEASE
     Dosage: 30 MG DAILY PO
     Route: 048
     Dates: start: 20051125

REACTIONS (5)
  - CHEST DISCOMFORT [None]
  - PRURITUS [None]
  - RASH ERYTHEMATOUS [None]
  - RASH MACULO-PAPULAR [None]
  - SWOLLEN TONGUE [None]
